FAERS Safety Report 10011571 (Version 2)
Quarter: 2014Q2

REPORT INFORMATION
  Report Type: Other
  Country: MX (occurrence: MX)
  Receive Date: 20140314
  Receipt Date: 20140415
  Transmission Date: 20141212
  Serious: No
  Sender: FDA-Public Use
  Company Number: PHHY2014MX030667

PATIENT
  Age: 52 Year
  Sex: Female

DRUGS (5)
  1. ONBREZ [Suspect]
     Indication: LUNG DISORDER
     Dosage: 1 DF, QD
     Route: 055
     Dates: start: 20140301
  2. ONBREZ [Suspect]
     Indication: OFF LABEL USE
  3. MIFLONIDE [Suspect]
     Indication: BRONCHIAL OBSTRUCTION
     Dosage: 2 DF, BID
     Route: 055
     Dates: start: 20140301
  4. MIFLONIDE [Suspect]
     Indication: ANTIINFLAMMATORY THERAPY
  5. MIFLONIDE [Suspect]
     Indication: OFF LABEL USE

REACTIONS (1)
  - Cough [Unknown]
